FAERS Safety Report 21249740 (Version 1)
Quarter: 2022Q3

REPORT INFORMATION
  Report Type: Report from Study
  Country: CA (occurrence: CA)
  Receive Date: 20220824
  Receipt Date: 20220824
  Transmission Date: 20221027
  Serious: Yes (Other)
  Sender: FDA-Public Use
  Company Number: CA-NOVARTISPH-NVSC2022CA188477

PATIENT
  Age: 74 Year
  Sex: Male

DRUGS (5)
  1. METHOTREXATE [Suspect]
     Active Substance: METHOTREXATE
     Indication: Product used for unknown indication
     Dosage: 25 MG, (WEEKLY)
     Route: 058
     Dates: end: 20200521
  2. XELJANZ [Concomitant]
     Active Substance: TOFACITINIB CITRATE
     Indication: Product used for unknown indication
     Dosage: UNK
     Route: 048
  3. METHOTREXATE [Concomitant]
     Active Substance: METHOTREXATE
     Indication: Product used for unknown indication
     Dosage: 1 DOSAGE FORM, (BI WEEKLY)
     Route: 048
     Dates: start: 2007, end: 2020
  4. STELARA [Concomitant]
     Active Substance: USTEKINUMAB
     Indication: Product used for unknown indication
     Dosage: UNK
     Route: 058
     Dates: start: 2012
  5. ENBREL [Concomitant]
     Active Substance: ETANERCEPT
     Indication: Product used for unknown indication
     Dosage: 1 DOSAGE FORM, (WEEKLY)
     Route: 058
     Dates: start: 2017, end: 2017

REACTIONS (9)
  - Chronic lymphocytic leukaemia [Unknown]
  - Psoriatic arthropathy [Unknown]
  - Joint swelling [Unknown]
  - Tenosynovitis [Unknown]
  - Synovitis [Unknown]
  - Hyperaemia [Unknown]
  - Joint effusion [Unknown]
  - Exostosis [Unknown]
  - Arthropathy [Unknown]

NARRATIVE: CASE EVENT DATE: 20190409
